APPROVED DRUG PRODUCT: SPIRONOLACTONE
Active Ingredient: SPIRONOLACTONE
Strength: 25MG/5ML
Dosage Form/Route: SUSPENSION;ORAL
Application: A218085 | Product #001 | TE Code: AB
Applicant: HETERO LABS LTD UNIT III
Approved: Feb 21, 2025 | RLD: No | RS: No | Type: RX